FAERS Safety Report 8037762-0 (Version None)
Quarter: 2012Q1

REPORT INFORMATION
  Report Type: 
  Country: None (occurrence: None)
  Receive Date: 20120111
  Receipt Date: 20120105
  Transmission Date: 20120608
  Serious: Yes (Hospitalization)
  Sender: FDA-Public Use
  Company Number: US-PFIZER INC-2012005100

PATIENT
  Age: 73 Year
  Sex: Female
  Weight: 59 kg

DRUGS (2)
  1. DOXORUBICIN HCL [Suspect]
     Indication: MALIGNANT SOFT TISSUE NEOPLASM
     Dosage: 37.5 MG/M2, UNK
     Route: 042
     Dates: start: 20111028
  2. IMC-A12 [Suspect]
     Indication: MALIGNANT SOFT TISSUE NEOPLASM
     Dosage: 37.5 MG/M2, UNK
     Route: 042
     Dates: start: 20111028

REACTIONS (3)
  - NEUTROPENIA [None]
  - WOUND INFECTION [None]
  - DEHYDRATION [None]
